FAERS Safety Report 12819388 (Version 1)
Quarter: 2016Q4

REPORT INFORMATION
  Report Type: Report from Study
  Country: US (occurrence: US)
  Receive Date: 20161006
  Receipt Date: 20161006
  Transmission Date: 20170207
  Serious: No
  Sender: FDA-Public Use
  Company Number: US-AMGEN-USASL2016002115

PATIENT
  Age: 80 Year
  Sex: Female

DRUGS (2)
  1. PREDNISONE                         /00044702/ [Concomitant]
     Active Substance: PREDNISONE
     Dosage: FROM 100MG DAILY TO 12MG DAILY
  2. PROLIA [Suspect]
     Active Substance: DENOSUMAB
     Indication: PRODUCT USED FOR UNKNOWN INDICATION
     Dosage: UNK
     Route: 065
     Dates: start: 20150924

REACTIONS (3)
  - Toothache [Not Recovered/Not Resolved]
  - Tooth loss [Unknown]
  - Ear pain [Unknown]

NARRATIVE: CASE EVENT DATE: 2015
